FAERS Safety Report 5897192-4 (Version None)
Quarter: 2008Q3

REPORT INFORMATION
  Report Type: 
  Country: None (occurrence: None)
  Receive Date: 20080923
  Receipt Date: 20080915
  Transmission Date: 20090109
  Serious: Yes (Hospitalization, Other)
  Sender: FDA-Public Use
  Company Number: 08H-163-0314909-00

PATIENT
  Age: 56 Year
  Sex: Male

DRUGS (14)
  1. HYDROMORPHONE HCL [Suspect]
     Indication: PAIN MANAGEMENT
     Dosage: SEE  IMAGE
  2. MORPHINE SULFATE INJ [Suspect]
     Indication: PAIN MANAGEMENT
     Dosage: VIA PCA;  3MG EVERY 6 MIN., 6MG/H BASAL RATE, VIA PCA; 4MG DEMAND DOSE, 10MG/H BASAL RATE, VIA PCA
  3. MORPHINE [Suspect]
     Indication: BREAKTHROUGH PAIN
     Dosage: 120 MG, 3 IN 1 D, ORAL; 230 MG, 3 IN 1 D, ORAL
     Route: 048
  4. ... [Concomitant]
  5. MORPHINE [Suspect]
     Indication: BACK PAIN
     Dosage: 60 MG, EVERY 4 HOURS AS NEEDED, ORAL;  120 MG, 3 HR, ORAL ; 200 MG, 3 HR, ORAL
     Route: 048
  6. MORPHINE [Suspect]
     Indication: BREAKTHROUGH PAIN
     Dosage: 60 MG, EVERY 4 HOURS AS NEEDED, ORAL;  120 MG, 3 HR, ORAL ; 200 MG, 3 HR, ORAL
     Route: 048
  7. OXYCODONE CONTROLLED-RELEASE (OXYCODONE) [Suspect]
     Indication: PAIN MANAGEMENT
     Dosage: 140 MG, 12 HR, ORAL; 120 MG, 3 IN 1 D, ORAL; 60 MG, 2 IN 1 D, ORAL
     Route: 048
  8. OXYCODONE IMMEDIATE-CONTROLLED (OXYCODONE) [Suspect]
     Indication: PAIN MANAGEMENT
     Dosage: 15 MG, EVERY 4 HOURS AS NEEDED, ORAL;  50 MG, EVERY 8 HOURS AS NEEDED, ORAL
     Route: 048
  9. FENTANYL [Suspect]
     Indication: ANALGESIC THERAPY
     Dosage: 200 MCG, TRANSDERMAL
     Route: 062
  10. DEXAMETHASONE TAB [Concomitant]
  11. IBUPROFEN [Concomitant]
  12. LORAZEPAM [Concomitant]
  13. LIDOCAINE 5% PATCH(LIDOCAINE) [Concomitant]
  14. METHADONE HCL [Concomitant]

REACTIONS (7)
  - ASTHENIA [None]
  - FATIGUE [None]
  - HYPERAESTHESIA [None]
  - NAUSEA [None]
  - SEDATION [None]
  - SOMNOLENCE [None]
  - VOMITING [None]
